FAERS Safety Report 23177413 (Version 2)
Quarter: 2025Q3

REPORT INFORMATION
  Report Type: Report from Study
  Country: EU (occurrence: EU)
  Receive Date: 20231113
  Receipt Date: 20250808
  Transmission Date: 20251020
  Serious: Yes (Death)
  Sender: MYLAN
  Company Number: EU-MYLANLABS-2023M1119874

PATIENT
  Sex: Male

DRUGS (1)
  1. GLATIRAMER ACETATE [Suspect]
     Active Substance: GLATIRAMER ACETATE
     Indication: Multiple sclerosis relapse
     Dosage: 40 MILLIGRAM, 3XW (40MG 3 X PER WEEK)
     Dates: start: 20201103, end: 20231107

REACTIONS (1)
  - Leukaemia [Fatal]
